FAERS Safety Report 6738646-8 (Version None)
Quarter: 2010Q2

REPORT INFORMATION
  Report Type: 
  Country: None (occurrence: None)
  Receive Date: 20100524
  Receipt Date: 20100512
  Transmission Date: 20101027
  Serious: Yes (Hospitalization)
  Sender: FDA-Public Use
  Company Number: US-JNJCH-2010012185

PATIENT
  Sex: Female

DRUGS (3)
  1. CHILDREN'S ZYRTEC ALLERGY [Suspect]
     Indication: PYREXIA
     Dosage: TEXT:UNKNOWN
     Route: 048
  2. CHILDREN'S MOTRIN [Suspect]
     Indication: PYREXIA
     Dosage: TEXT:UNKNOWN
     Route: 048
  3. TYLENOL CHILDRENS [Suspect]
     Indication: PYREXIA
     Dosage: TEXT:UNKNOWN
     Route: 048

REACTIONS (4)
  - EAR INFECTION [None]
  - OFF LABEL USE [None]
  - PNEUMONIA [None]
  - PRODUCT QUALITY ISSUE [None]
